FAERS Safety Report 8825607 (Version 1)
Quarter: 2012Q4

REPORT INFORMATION
  Report Type: 
  Country: US (occurrence: US)
  Receive Date: 20121004
  Receipt Date: 20121004
  Transmission Date: 20130627
  Serious: No
  Sender: FDA-Public Use
  Company Number: US-PFIZER INC-2012241316

PATIENT
  Age: 66 Year
  Sex: Male
  Weight: 67.12 kg

DRUGS (3)
  1. VIAGRA [Suspect]
     Indication: ERECTILE DYSFUNCTION
     Dosage: UNK, unknown dose daily by splitting the tablets
     Route: 048
     Dates: start: 201111
  2. VIAGRA [Suspect]
     Dosage: 50 mg, UNK
  3. VIAGRA [Suspect]
     Dosage: 100 mg, UNK
     Route: 048
     Dates: start: 2012

REACTIONS (1)
  - Drug ineffective [Unknown]
